FAERS Safety Report 15467587 (Version 1)
Quarter: 2018Q4

REPORT INFORMATION
  Report Type: Spontaneous
  Country: IN (occurrence: IN)
  Receive Date: 20181005
  Receipt Date: 20181005
  Transmission Date: 20190204
  Serious: Yes (Other)
  Sender: FDA-Public Use
  Company Number: IN-ACCORD-072940

PATIENT
  Age: 28 Year
  Sex: Male

DRUGS (1)
  1. METHOTREXATE. [Suspect]
     Active Substance: METHOTREXATE
     Indication: RETINAL VASCULITIS
     Dosage: INTRAVITREAL
     Route: 031

REACTIONS (3)
  - Product contamination microbial [Unknown]
  - Endophthalmitis [Recovered/Resolved]
  - Burkholderia infection [Unknown]
